FAERS Safety Report 24266107 (Version 1)
Quarter: 2024Q3

REPORT INFORMATION
  Report Type: Spontaneous
  Country: US (occurrence: US)
  Receive Date: 20240830
  Receipt Date: 20240830
  Transmission Date: 20241017
  Serious: No
  Sender: ROCHE
  Company Number: US-MLMSERVICE-20160304-0196683-1

PATIENT
  Age: 49 Year
  Sex: Female
  Weight: 71.5 kg

DRUGS (2)
  1. MYCOPHENOLATE MOFETIL [Suspect]
     Active Substance: MYCOPHENOLATE MOFETIL
     Indication: Lupus nephritis
     Route: 065
  2. LEVOTHYROXINE [Concomitant]
     Active Substance: LEVOTHYROXINE\LEVOTHYROXINE SODIUM
     Indication: Graves^ disease

REACTIONS (3)
  - Hypokalaemia [Unknown]
  - Haematuria [Recovering/Resolving]
  - Diarrhoea [Unknown]
